FAERS Safety Report 5387265-7 (Version None)
Quarter: 2007Q3

REPORT INFORMATION
  Report Type: 
  Country: None (occurrence: None)
  Receive Date: 20070706
  Receipt Date: 20070503
  Transmission Date: 20080115
  Serious: Yes (Other)
  Sender: FDA-Public Use
  Company Number: PHEH2007US06946

PATIENT
  Sex: Male

DRUGS (3)
  1. TEKTURNA [Suspect]
     Indication: HYPERTENSION
     Dosage: 150 MG, QD, ORAL : 300 MG, QD, ORAL
     Route: 048
     Dates: start: 20070401, end: 20070501
  2. TEKTURNA [Suspect]
     Indication: HYPERTENSION
     Dosage: 150 MG, QD, ORAL : 300 MG, QD, ORAL
     Route: 048
     Dates: start: 20070502
  3. DETROL LA [Suspect]
     Indication: HYPERTONIC BLADDER
     Dates: start: 20070401

REACTIONS (2)
  - ASTHENIA [None]
  - BLOOD PRESSURE INCREASED [None]
